FAERS Safety Report 6992691-6 (Version None)
Quarter: 2010Q3

REPORT INFORMATION
  Report Type: 
  Country: None (occurrence: None)
  Receive Date: 20100917
  Receipt Date: 20100913
  Transmission Date: 20110219
  Serious: Yes (Hospitalization, Other)
  Sender: FDA-Public Use
  Company Number: US-MERCK-1009USA02646

PATIENT
  Age: 60 Year
  Sex: Female

DRUGS (5)
  1. FOSAMAX [Suspect]
     Indication: OSTEOPOROSIS
     Route: 065
     Dates: start: 20060101
  2. OXYCODONE [Concomitant]
     Route: 065
  3. AMITRIPTYLINE HYDROCHLORIDE [Concomitant]
     Route: 065
  4. FOSAMAX [Concomitant]
     Route: 048
     Dates: end: 20060101
  5. DARVOCET-N 100 [Concomitant]
     Route: 065

REACTIONS (2)
  - ADVERSE EVENT [None]
  - ALOPECIA [None]
